FAERS Safety Report 10420509 (Version 1)
Quarter: 2014Q2

REPORT INFORMATION
  Report Type: Spontaneous
  Country: US (occurrence: None)
  Receive Date: 20140618
  Receipt Date: 20140618
  Transmission Date: 20141212
  Serious: Yes (Hospitalization)
  Sender: FDA-Public Use
  Company Number: 114600

PATIENT
  Age: 37 Year
  Sex: Male
  Weight: 81.6 kg

DRUGS (2)
  1. LACOSAMIDE [Suspect]
     Indication: CONVULSION
     Dates: end: 201401
  2. OXCARBAZEPINE [Concomitant]

REACTIONS (1)
  - Convulsion [None]
